FAERS Safety Report 9371561 (Version 1)
Quarter: 2013Q2

REPORT INFORMATION
  Report Type: Spontaneous
  Country: GB (occurrence: GB)
  Receive Date: 20130627
  Receipt Date: 20130627
  Transmission Date: 20140414
  Serious: Yes (Other)
  Sender: FDA-Public Use
  Company Number: GB-RANBAXY-2013R1-70696

PATIENT
  Age: 58 Year
  Sex: Female

DRUGS (5)
  1. TRIAMCINOLONE [Suspect]
     Indication: OSTEOARTHRITIS
     Route: 065
  2. RITONAVIR [Interacting]
     Indication: ANTIRETROVIRAL THERAPY
     Route: 065
  3. EMTRICITABINE [Concomitant]
     Indication: ANTIRETROVIRAL THERAPY
     Route: 065
  4. ATAZANAVIR [Concomitant]
     Indication: ANTIRETROVIRAL THERAPY
     Route: 065
  5. TENOFOVIR [Concomitant]
     Indication: ANTIRETROVIRAL THERAPY
     Route: 065

REACTIONS (2)
  - Cushing^s syndrome [Recovered/Resolved]
  - Drug interaction [Unknown]
